FAERS Safety Report 15205019 (Version 1)
Quarter: 2018Q3

REPORT INFORMATION
  Report Type: Report from Study
  Country: None (occurrence: US)
  Receive Date: 20180726
  Receipt Date: 20180726
  Transmission Date: 20181010
  Serious: Yes (Hospitalization, Other)
  Sender: FDA-Public Use
  Company Number: US-ABBVIE-18K-163-2387658-00

PATIENT
  Age: 28 Year
  Sex: Male
  Weight: 58.11 kg

DRUGS (1)
  1. HUMIRA [Suspect]
     Active Substance: ADALIMUMAB
     Indication: CROHN^S DISEASE
     Route: 058

REACTIONS (13)
  - Gastrointestinal wall thickening [Unknown]
  - Distal intestinal obstruction syndrome [Unknown]
  - Intestinal dilatation [Unknown]
  - Nausea [Recovered/Resolved]
  - Blood potassium decreased [Unknown]
  - Diarrhoea [Recovered/Resolved]
  - White blood cell count increased [Unknown]
  - Haemoglobin decreased [Unknown]
  - Red blood cell count decreased [Unknown]
  - Crohn^s disease [Recovered/Resolved]
  - Enteritis [Unknown]
  - Hospitalisation [Unknown]
  - Vomiting [Recovered/Resolved]

NARRATIVE: CASE EVENT DATE: 20180710
